FAERS Safety Report 25254462 (Version 1)
Quarter: 2025Q2

REPORT INFORMATION
  Report Type: Spontaneous
  Country: US (occurrence: US)
  Receive Date: 20250430
  Receipt Date: 20250430
  Transmission Date: 20250716
  Serious: Yes (Other)
  Sender: ABBVIE
  Company Number: US-ABBVIE-6240356

PATIENT
  Age: 72 Year
  Sex: Female
  Weight: 74 kg

DRUGS (19)
  1. HUMIRA [Suspect]
     Active Substance: ADALIMUMAB
     Indication: Product used for unknown indication
     Route: 058
  2. LEFLUNOMIDE [Concomitant]
     Active Substance: LEFLUNOMIDE
     Indication: Rheumatoid arthritis
     Dosage: 1 TABLET
     Route: 048
  3. DICLOFENAC [Concomitant]
     Active Substance: DICLOFENAC
     Indication: Product used for unknown indication
     Route: 048
  4. CELEBREX [Suspect]
     Active Substance: CELECOXIB
     Indication: Product used for unknown indication
     Route: 065
  5. XELJANZ XR [Suspect]
     Active Substance: TOFACITINIB CITRATE
     Indication: Rheumatoid arthritis
     Dosage: DOSAGE: 11 /MIN
     Route: 048
     Dates: start: 2017
  6. TRAMADOL [Concomitant]
     Active Substance: TRAMADOL
     Indication: Product used for unknown indication
  7. METHOTREXATE [Suspect]
     Active Substance: METHOTREXATE
     Indication: Product used for unknown indication
     Route: 065
  8. HYDROCODONE [Suspect]
     Active Substance: HYDROCODONE
     Indication: Constipation
     Route: 065
  9. OMEPRAZOLE [Concomitant]
     Active Substance: OMEPRAZOLE
     Indication: Product used for unknown indication
     Dosage: BEFORE A MEAL
     Route: 048
  10. ROSUVASTATIN [Concomitant]
     Active Substance: ROSUVASTATIN
     Indication: Product used for unknown indication
     Route: 048
  11. STOOL SOFTENER (DOCUSATE) [Concomitant]
     Active Substance: DOCUSATE
     Indication: Product used for unknown indication
     Route: 048
  12. TRIAMTERENE [Concomitant]
     Active Substance: TRIAMTERENE
     Indication: Product used for unknown indication
     Route: 048
  13. HYDROCHLOROTHIAZIDE [Concomitant]
     Active Substance: HYDROCHLOROTHIAZIDE
     Indication: Product used for unknown indication
     Route: 048
  14. VITAMIN D3 [Concomitant]
     Active Substance: CHOLECALCIFEROL
     Indication: Product used for unknown indication
  15. LEVOTHYROXINE [Concomitant]
     Active Substance: LEVOTHYROXINE
     Indication: Product used for unknown indication
     Route: 048
  16. LOSARTAN [Concomitant]
     Active Substance: LOSARTAN
     Indication: Product used for unknown indication
     Route: 048
  17. ACETAMINOPHEN [Concomitant]
     Active Substance: ACETAMINOPHEN
     Indication: Product used for unknown indication
     Dosage: 500-1000 MG
  18. ACETAMINOPHEN [Concomitant]
     Active Substance: ACETAMINOPHEN
     Indication: Product used for unknown indication
  19. MODERNA COVID-19 VACCINE [Concomitant]
     Active Substance: ELASOMERAN
     Indication: COVID-19 immunisation
     Dates: start: 20211108, end: 20211108

REACTIONS (65)
  - Deafness [Unknown]
  - Nerve compression [Unknown]
  - Inflammation [Unknown]
  - Pain in extremity [Unknown]
  - Paraesthesia [Unknown]
  - Hypoaesthesia [Unknown]
  - Hypersensitivity [Unknown]
  - Musculoskeletal disorder [Unknown]
  - Musculoskeletal discomfort [Unknown]
  - Arthritis [Unknown]
  - Bursitis [Unknown]
  - Loss of personal independence in daily activities [Unknown]
  - Musculoskeletal stiffness [Unknown]
  - Neck pain [Not Recovered/Not Resolved]
  - Synovial cyst [Unknown]
  - Walking aid user [Unknown]
  - Constipation [Unknown]
  - Arthralgia [Unknown]
  - Joint swelling [Unknown]
  - Dry mouth [Unknown]
  - Tinnitus [Unknown]
  - Headache [Unknown]
  - Spinal laminectomy [Unknown]
  - Back pain [Not Recovered/Not Resolved]
  - Spondylolisthesis [Unknown]
  - Spinal osteoarthritis [Unknown]
  - Gastrooesophageal reflux disease [Unknown]
  - Rheumatoid arthritis [Unknown]
  - Spinal fusion surgery [Unknown]
  - Drug ineffective [Unknown]
  - Tarsal tunnel syndrome [Unknown]
  - Limb discomfort [Unknown]
  - Arthralgia [Unknown]
  - Drug intolerance [Unknown]
  - Feeling abnormal [Unknown]
  - Hernia [Unknown]
  - Intervertebral disc operation [Unknown]
  - Bone marrow oedema [Unknown]
  - Blood creatinine increased [Unknown]
  - Drug intolerance [Unknown]
  - Hip arthroplasty [Unknown]
  - Bunion operation [Unknown]
  - Bunion operation [Unknown]
  - Scapholunate dissociation [Unknown]
  - Carpal tunnel decompression [Unknown]
  - Wrist surgery [Unknown]
  - Spinal laminectomy [Unknown]
  - Bunion operation [Unknown]
  - Bunion operation [Unknown]
  - Bunion operation [Unknown]
  - Prolapse repair [Unknown]
  - Rotator cuff syndrome [Unknown]
  - Spinal fusion surgery [Unknown]
  - Greater trochanteric pain syndrome [Unknown]
  - Osteoarthritis [Unknown]
  - Spinal stenosis [Unknown]
  - Abdominoplasty [Unknown]
  - Bone graft [Unknown]
  - Intervertebral disc degeneration [Unknown]
  - Pain in jaw [Unknown]
  - Gait disturbance [Unknown]
  - Musculoskeletal stiffness [Unknown]
  - Carpal tunnel decompression [Unknown]
  - Drug ineffective [Unknown]
  - Thyroid disorder [Unknown]

NARRATIVE: CASE EVENT DATE: 20040401
